FAERS Safety Report 23542975 (Version 5)
Quarter: 2025Q2

REPORT INFORMATION
  Report Type: Report from Study
  Country: US (occurrence: US)
  Receive Date: 20240220
  Receipt Date: 20250617
  Transmission Date: 20250717
  Serious: Yes (Congenital Anomaly, Other)
  Sender: GILEAD
  Company Number: US-GILEAD-2024-0662177

PATIENT
  Age: 0 Year
  Sex: Male
  Weight: 3.912 kg

DRUGS (2)
  1. BICTEGRAVIR\EMTRICITABINE\TENOFOVIR ALAFENAMIDE [Suspect]
     Active Substance: BICTEGRAVIR\EMTRICITABINE\TENOFOVIR ALAFENAMIDE
     Indication: HIV infection
     Dosage: 275 MG, QD
     Route: 064
     Dates: start: 20221205
  2. METRONIDAZOLE [Suspect]
     Active Substance: METRONIDAZOLE
     Indication: HIV infection
     Route: 064

REACTIONS (6)
  - Left ventricular enlargement [Not Recovered/Not Resolved]
  - Arrhythmogenic right ventricular dysplasia [Not Recovered/Not Resolved]
  - Double outlet left ventricle [Not Recovered/Not Resolved]
  - Patent ductus arteriosus [Not Recovered/Not Resolved]
  - Double inlet left ventricle [Not Recovered/Not Resolved]
  - Foetal exposure during pregnancy [Recovered/Resolved]

NARRATIVE: CASE EVENT DATE: 20231001
